FAERS Safety Report 7202215-6 (Version None)
Quarter: 2010Q4

REPORT INFORMATION
  Report Type: 
  Country: None (occurrence: None)
  Receive Date: 20101229
  Receipt Date: 20101224
  Transmission Date: 20110411
  Serious: Yes (Hospitalization)
  Sender: FDA-Public Use
  Company Number: US-BRISTOL-MYERS SQUIBB COMPANY-15451081

PATIENT
  Age: 10 Year
  Sex: Male

DRUGS (9)
  1. TRIMETHOPRIM + SULFAMETHOXAZOLE [Suspect]
  2. CEFEPIME [Suspect]
  3. HYDROCORTISONE [Suspect]
  4. TOBRAMYCIN SULFATE [Suspect]
  5. CEFTRIAXONE [Suspect]
  6. VANCOMYCIN [Suspect]
  7. CLINDAMYCIN [Suspect]
  8. ACYCLOVIR SODIUM [Suspect]
  9. METHOTREXATE [Suspect]

REACTIONS (1)
  - HAEMOLYTIC ANAEMIA [None]
